FAERS Safety Report 12341712 (Version 2)
Quarter: 2016Q2

REPORT INFORMATION
  Report Type: Spontaneous
  Country: US (occurrence: US)
  Receive Date: 20160506
  Receipt Date: 20160630
  Transmission Date: 20160815
  Serious: Yes (Hospitalization, Other)
  Sender: FDA-Public Use
  Company Number: US-009507513-01062172

PATIENT
  Sex: Female

DRUGS (2)
  1. FOSAMAX [Suspect]
     Active Substance: ALENDRONATE SODIUM
     Indication: OSTEOPENIA
     Dosage: 10 MG, QD
     Route: 048
     Dates: start: 199501, end: 200001
  2. FOSAMAX [Suspect]
     Active Substance: ALENDRONATE SODIUM
     Indication: OSTEOPOROSIS PROPHYLAXIS

REACTIONS (13)
  - Device defective [Unknown]
  - Osteoporosis [Unknown]
  - Tooth extraction [Unknown]
  - Foot fracture [Unknown]
  - Muscle strain [Unknown]
  - Femur fracture [Unknown]
  - Hypertension [Unknown]
  - Fibula fracture [Unknown]
  - Varicose vein [Unknown]
  - Basal cell carcinoma [Unknown]
  - Pelvic fracture [Recovering/Resolving]
  - Malignant melanoma [Unknown]
  - Blood cholesterol increased [Unknown]

NARRATIVE: CASE EVENT DATE: 1995
